FAERS Safety Report 18110932 (Version 2)
Quarter: 2021Q1

REPORT INFORMATION
  Report Type: Report from Study
  Country: IT (occurrence: IT)
  Receive Date: 20200804
  Receipt Date: 20210222
  Transmission Date: 20210419
  Serious: Yes (Death, Life-Threatening)
  Sender: FDA-Public Use
  Company Number: IT-EXELIXIS-XL18420031767

PATIENT
  Age: 66 Year
  Sex: Male
  Weight: 82 kg

DRUGS (2)
  1. CABOZANTINIB [Suspect]
     Active Substance: CABOZANTINIB
     Indication: RENAL CELL CARCINOMA
     Dosage: 60 MG, DAILY
     Route: 048
     Dates: start: 20200513, end: 20200601
  2. CABOZANTINIB [Suspect]
     Active Substance: CABOZANTINIB
     Dosage: 40 MG, DAILY
     Route: 048
     Dates: start: 20200707, end: 20200816

REACTIONS (6)
  - Sepsis [Recovered/Resolved]
  - General physical health deterioration [Fatal]
  - Dry mouth [Not Recovered/Not Resolved]
  - Dysphonia [Not Recovered/Not Resolved]
  - Dysphagia [Not Recovered/Not Resolved]
  - Pyrexia [Recovering/Resolving]

NARRATIVE: CASE EVENT DATE: 202005
